FAERS Safety Report 13950384 (Version 1)
Quarter: 2017Q3

REPORT INFORMATION
  Report Type: Spontaneous
  Country: US (occurrence: US)
  Receive Date: 20170908
  Receipt Date: 20170908
  Transmission Date: 20171128
  Serious: No
  Sender: FDA-Public Use
  Company Number: US-ROCHE-1132440

PATIENT
  Sex: Female

DRUGS (4)
  1. ALLOPURINOL. [Concomitant]
     Active Substance: ALLOPURINOL
  2. RITUXAN [Suspect]
     Active Substance: RITUXIMAB
     Indication: MALIGNANT LYMPHOID NEOPLASM
     Route: 065
     Dates: start: 20010726
  3. RITUXAN [Suspect]
     Active Substance: RITUXIMAB
     Indication: OFF LABEL USE
  4. PEPCID [Concomitant]
     Active Substance: FAMOTIDINE

REACTIONS (3)
  - Neutropenia [Unknown]
  - Hypersensitivity [Unknown]
  - Pyrexia [Unknown]
